FAERS Safety Report 6203716-X (Version None)
Quarter: 2009Q2

REPORT INFORMATION
  Report Type: 
  Country: None (occurrence: None)
  Receive Date: 20090526
  Receipt Date: 20090526
  Transmission Date: 20091009
  Serious: Yes (Other)
  Sender: FDA-Public Use
  Company Number: None

PATIENT
  Age: 73 Year
  Sex: Female
  Weight: 86.1834 kg

DRUGS (3)
  1. WARFARIN SODIUM [Suspect]
     Indication: ANTICOAGULANT THERAPY
     Dosage: 1 MG , SOMETIMES 3 OR 4 MG 1 X DAY
     Dates: start: 20080901, end: 20090327
  2. WARFARIN SODIUM [Suspect]
     Indication: HEART RATE IRREGULAR
     Dosage: 1 MG , SOMETIMES 3 OR 4 MG 1 X DAY
     Dates: start: 20080901, end: 20090327
  3. COUMADIN [Concomitant]

REACTIONS (6)
  - ERYTHEMA [None]
  - EYE SWELLING [None]
  - PRODUCT SUBSTITUTION ISSUE [None]
  - RASH PRURITIC [None]
  - SKIN EXFOLIATION [None]
  - SWELLING FACE [None]
